FAERS Safety Report 25572354 (Version 9)
Quarter: 2025Q3

REPORT INFORMATION
  Report Type: Report from Study
  Country: BR (occurrence: BR)
  Receive Date: 20250717
  Receipt Date: 20250905
  Transmission Date: 20251020
  Serious: Yes (Hospitalization, Other)
  Sender: NOVARTIS
  Company Number: BR-002147023-NVSC2025BR112907

PATIENT
  Age: 61 Year
  Sex: Female

DRUGS (5)
  1. KISQALI [Suspect]
     Active Substance: RIBOCICLIB SUCCINATE
     Indication: Breast cancer metastatic
     Route: 042
     Dates: start: 202507
  2. KISQALI [Suspect]
     Active Substance: RIBOCICLIB SUCCINATE
     Dosage: 3 DOSAGE FORM, QD (3 TABLETS IN THE MORNING FOR 21 DAYS, A 7-DAY BREAK)
     Route: 048
     Dates: start: 20250717
  3. KISQALI [Suspect]
     Active Substance: RIBOCICLIB SUCCINATE
     Dosage: 600 MG, QD,  EVERY 21 DAYS, 7 DAYS OFF
     Route: 065
  4. ZOMETA [Suspect]
     Active Substance: ZOLEDRONIC ACID
     Indication: Breast cancer metastatic
     Route: 065
     Dates: start: 20250709
  5. ZOMETA [Suspect]
     Active Substance: ZOLEDRONIC ACID
     Route: 065

REACTIONS (35)
  - Pain [Recovered/Resolved]
  - Bone pain [Recovering/Resolving]
  - Pyrexia [Recovered/Resolved]
  - Mental disorder [Unknown]
  - Asthenia [Not Recovered/Not Resolved]
  - Metastases to bone [Recovered/Resolved]
  - Head discomfort [Unknown]
  - Malaise [Unknown]
  - Insomnia [Unknown]
  - Tooth infection [Not Recovered/Not Resolved]
  - Mass [Not Recovered/Not Resolved]
  - Chest pain [Recovering/Resolving]
  - Sinusitis [Recovered/Resolved]
  - Anxiety [Unknown]
  - Abdominal discomfort [Not Recovered/Not Resolved]
  - Dyspepsia [Recovered/Resolved]
  - Pulpitis dental [Recovered/Resolved]
  - Toothache [Recovering/Resolving]
  - Tooth fracture [Recovered/Resolved]
  - Tooth loss [Unknown]
  - Influenza like illness [Recovered/Resolved]
  - Swelling face [Recovered/Resolved]
  - Pharyngeal swelling [Recovered/Resolved]
  - Cough [Unknown]
  - Eye swelling [Recovered/Resolved]
  - Eye pruritus [Recovered/Resolved]
  - Pruritus [Recovered/Resolved]
  - Blister [Recovered/Resolved]
  - Secretion discharge [Recovered/Resolved]
  - Discharge [Recovered/Resolved]
  - Bloody discharge [Recovered/Resolved]
  - Gingival swelling [Not Recovered/Not Resolved]
  - Product use issue [Unknown]
  - Nasal septum deviation [Unknown]
  - Nausea [Recovered/Resolved]

NARRATIVE: CASE EVENT DATE: 20250701
